FAERS Safety Report 9302278 (Version 1)
Quarter: 2013Q2

REPORT INFORMATION
  Report Type: Spontaneous
  Country: ZA (occurrence: ZA)
  Receive Date: 20130522
  Receipt Date: 20130522
  Transmission Date: 20140414
  Serious: Yes (Hospitalization)
  Sender: FDA-Public Use
  Company Number: ZA-009507513-1305ZAF010999

PATIENT
  Age: 68 Year
  Sex: Male

DRUGS (2)
  1. TEMODAL [Suspect]
     Indication: GLIOBLASTOMA MULTIFORME
     Dosage: FREQUENCY 42 DAYS
     Route: 042
     Dates: start: 201303, end: 201304
  2. SULFAMETHOXAZOLE (+) TRIMETHOPRIM [Concomitant]
     Indication: ANTIFUNGAL PROPHYLAXIS

REACTIONS (5)
  - Pneumonia [Unknown]
  - Platelet count decreased [Recovering/Resolving]
  - White blood cell count decreased [Recovering/Resolving]
  - Haemoglobin decreased [Recovering/Resolving]
  - Cognitive disorder [Unknown]
